FAERS Safety Report 8217530-7 (Version None)
Quarter: 2012Q1

REPORT INFORMATION
  Report Type: 
  Country: None (occurrence: None)
  Receive Date: 20120314
  Receipt Date: 20120307
  Transmission Date: 20120608
  Serious: Yes (Other)
  Sender: FDA-Public Use
  Company Number: 2012MA003090

PATIENT
  Sex: Female

DRUGS (2)
  1. KADIAN [Suspect]
  2. OXYCODONE HCL [Suspect]

REACTIONS (2)
  - MULTIPLE DRUG OVERDOSE [None]
  - OVERDOSE [None]
